FAERS Safety Report 10245373 (Version 1)
Quarter: 2014Q2

REPORT INFORMATION
  Report Type: Spontaneous
  Country: SI (occurrence: SI)
  Receive Date: 20140618
  Receipt Date: 20140618
  Transmission Date: 20141212
  Serious: Yes (Life-Threatening, Hospitalization)
  Sender: FDA-Public Use
  Company Number: SI-B.I. PHARMACEUTICALS,INC./RIDGEFIELD-2014-BI-27552SL

PATIENT
  Age: 70 Year
  Sex: Male

DRUGS (6)
  1. PRADAXA [Suspect]
     Indication: ATRIAL FIBRILLATION
     Dosage: 300 MG
     Route: 048
  2. CONCOR [Concomitant]
     Indication: ATRIAL FIBRILLATION
     Dosage: 20 MG
     Route: 065
  3. CONCOR [Concomitant]
     Indication: VENTRICULAR TACHYCARDIA
  4. TERTENSIF SR [Concomitant]
     Indication: HYPERTENSION
     Dosage: 1.5 MG
     Route: 065
  5. VALSACOR [Concomitant]
     Indication: HYPERTENSION
     Dosage: 160 MG
     Route: 065
  6. KAMIREN XL [Concomitant]
     Dosage: 8 MG
     Route: 065

REACTIONS (1)
  - Ischaemic stroke [Unknown]
